FAERS Safety Report 7629003-0 (Version None)
Quarter: 2011Q3

REPORT INFORMATION
  Report Type: 
  Country: None (occurrence: None)
  Receive Date: 20110722
  Receipt Date: 20110718
  Transmission Date: 20111222
  Serious: Yes (Death)
  Sender: FDA-Public Use
  Company Number: DE-BRACCO-000772

PATIENT
  Sex: Female
  Weight: 60 kg

DRUGS (12)
  1. SIMVA [Concomitant]
  2. METOPROLOL TARTRATE [Concomitant]
     Dosage: BELOK ZOK MITE, TAKEN IN THE MORNING
     Dates: start: 20101001
  3. DELIX PLUS [Concomitant]
     Dosage: TAKEN IN THE MORNING
     Dates: start: 20101001
  4. IOPAMIDOL [Suspect]
     Indication: NON-HODGKIN'S LYMPHOMA
     Dates: start: 20101220, end: 20101220
  5. IOPAMIDOL [Suspect]
     Indication: COMPUTERISED TOMOGRAM
     Dates: start: 20101220, end: 20101220
  6. LEVOTHYROXINE SODIUM [Concomitant]
     Dosage: TAKEN IN THE MORNING
     Dates: start: 20101001
  7. TIMONIL [Concomitant]
     Dosage: TAKEN IN THE EVENING
     Dates: start: 20101001
  8. RAMIPRIL [Concomitant]
     Dosage: TAKEN IN THE MORNING
  9. PLAVIX [Concomitant]
     Dosage: TAKEN IN THE MORNING
     Dates: start: 20101001
  10. ASPIRIN [Concomitant]
     Dosage: TAKEN IN THE MORNING
     Dates: start: 20101001
  11. AZOPT [Concomitant]
  12. BERLOSIN [Concomitant]

REACTIONS (1)
  - MYOCARDIAL INFARCTION [None]
